FAERS Safety Report 4653114-5 (Version None)
Quarter: 2005Q2

REPORT INFORMATION
  Report Type: 
  Country: None (occurrence: None)
  Receive Date: 20050502
  Receipt Date: 20050502
  Transmission Date: 20051028
  Serious: Yes (Life-Threatening)
  Sender: FDA-Public Use
  Company Number: None

PATIENT
  Age: 40 Year
  Sex: Female
  Weight: 121.564 kg

DRUGS (4)
  1. ELOXATIN [Suspect]
     Indication: COLON CANCER
     Dosage: 170MG IV Q 3 WEEKS
     Route: 042
     Dates: start: 20041028, end: 20050324
  2. ALOXI [Concomitant]
  3. DECADRON [Concomitant]
  4. LEUCOVORIN CALCIUM [Concomitant]

REACTIONS (8)
  - ABDOMINAL PAIN [None]
  - BLOOD PRESSURE INCREASED [None]
  - DEFAECATION URGENCY [None]
  - DYSPNOEA [None]
  - GENERALISED OEDEMA [None]
  - OBSTRUCTIVE AIRWAYS DISORDER [None]
  - SWOLLEN TONGUE [None]
  - TREMOR [None]
